FAERS Safety Report 7949383-6 (Version None)
Quarter: 2011Q4

REPORT INFORMATION
  Report Type: 
  Country: None (occurrence: None)
  Receive Date: 20111130
  Receipt Date: 20111121
  Transmission Date: 20120403
  Serious: Yes (Other)
  Sender: FDA-Public Use
  Company Number: US-GLAXOSMITHKLINE-A0954117A

PATIENT

DRUGS (1)
  1. VOTRIENT [Suspect]
     Indication: RENAL CELL CARCINOMA
     Route: 048
     Dates: start: 20110101, end: 20111101

REACTIONS (3)
  - ABDOMINAL PAIN [None]
  - CLOSTRIDIAL INFECTION [None]
  - DIARRHOEA [None]
